FAERS Safety Report 8376937 (Version 2)
Quarter: 2013Q1

REPORT INFORMATION
  Report Type: Report from Study
  Country: US (occurrence: US)
  Receive Date: 20120129
  Receipt Date: 20130129
  Transmission Date: 20140127
  Serious: No
  Sender: FDA-Public Use
  Company Number: US-ABBOTT-11P-163-0881119-00

PATIENT
  Age: 64 Year
  Sex: Female

DRUGS (11)
  1. HUMIRA 40 MG/ 0.8 ML PRE-FILLED SYRINGE [Suspect]
     Indication: RHEUMATOID ARTHRITIS
     Dates: start: 201103
  2. METHOTREXATE [Concomitant]
     Indication: PRODUCT USED FOR UNKNOWN INDICATION
     Dosage: ON WEDNESDAY
  3. DIOVAN [Concomitant]
     Indication: HYPERTENSION
     Dosage: DAILY
  4. LOSARTAN [Concomitant]
     Indication: HYPERTENSION
  5. FOLIC ACID [Concomitant]
     Indication: PRODUCT USED FOR UNKNOWN INDICATION
  6. FUROSEMIDE [Concomitant]
     Indication: HYPERTENSION
  7. POTASSIUM CHLORIDE [Concomitant]
     Indication: PRODUCT USED FOR UNKNOWN INDICATION
  8. TRIAMTERENE AND HYDROCHLOROTHIAZIDE [Concomitant]
     Indication: HYPERTENSION
     Dosage: 75/50MG
  9. TRAVATAN [Concomitant]
     Indication: GLAUCOMA
     Dosage: 1 GTT EACH EYE
  10. CALCITRATE [Concomitant]
     Indication: ILL-DEFINED DISORDER
     Dosage: CHEWABLE OVER THE COUNTER 600D
  11. MOVE FREE [Concomitant]
     Indication: SUPPLEMENTATION THERAPY
     Dosage: OVER THE COUNTER

REACTIONS (4)
  - Contusion [Unknown]
  - Injection site reaction [Unknown]
  - Drug effect decreased [Unknown]
  - Pain [Unknown]
